FAERS Safety Report 20064604 (Version 2)
Quarter: 2021Q4

REPORT INFORMATION
  Report Type: Report from Study
  Country: US (occurrence: US)
  Receive Date: 20211112
  Receipt Date: 20211118
  Transmission Date: 20220303
  Serious: Yes (Other)
  Sender: FDA-Public Use
  Company Number: US-ALLERGAN-2138077US

PATIENT
  Sex: Male
  Weight: 79.38 kg

DRUGS (7)
  1. BOTULINUM TOXIN TYPE A [Suspect]
     Active Substance: BOTULINUM TOXIN TYPE A
     Indication: Muscle spasticity
     Dosage: UNK UNK, SINGLE
  2. BOTULINUM TOXIN TYPE A [Suspect]
     Active Substance: BOTULINUM TOXIN TYPE A
     Dosage: 500 UNITS, SINGLE
     Dates: start: 20211109, end: 20211109
  3. BACLOFEN [Concomitant]
     Active Substance: BACLOFEN
     Dosage: 20 MG, QHS
     Route: 048
  4. BACLOFEN [Concomitant]
     Active Substance: BACLOFEN
     Dosage: 20 MG, BID
  5. BACLOFEN [Concomitant]
     Active Substance: BACLOFEN
     Dosage: 20 MG, TID
     Route: 048
  6. DULOXETINE [Concomitant]
     Active Substance: DULOXETINE
     Dosage: 120 MG, QD
     Route: 048
  7. TYLENOL [Concomitant]
     Active Substance: ACETAMINOPHEN
     Dosage: 650 MG, PRN
     Route: 048

REACTIONS (4)
  - Cerebrovascular accident [Unknown]
  - Discomfort [Not Recovered/Not Resolved]
  - Gait disturbance [Not Recovered/Not Resolved]
  - Muscle spasticity [Not Recovered/Not Resolved]
